FAERS Safety Report 8303719-5 (Version None)
Quarter: 2012Q2

REPORT INFORMATION
  Report Type: 
  Country: None (occurrence: None)
  Receive Date: 20120423
  Receipt Date: 20120415
  Transmission Date: 20120825
  Serious: Yes (Other)
  Sender: FDA-Public Use
  Company Number: US-BAYER-2012-036530

PATIENT
  Sex: Female

DRUGS (1)
  1. MIRENA [Suspect]
     Dosage: 20 MCG/24HR, CONT
     Route: 015
     Dates: start: 20080101, end: 20120415

REACTIONS (13)
  - MENORRHAGIA [None]
  - OVARIAN CYST [None]
  - BACK PAIN [None]
  - STRESS [None]
  - FATIGUE [None]
  - DEVICE DISLOCATION [None]
  - ALOPECIA [None]
  - ACNE [None]
  - DEVICE EXPULSION [None]
  - ABDOMINAL PAIN [None]
  - MOOD SWINGS [None]
  - ADNEXA UTERI PAIN [None]
  - MALAISE [None]
